FAERS Safety Report 5075054-2 (Version None)
Quarter: 2006Q3

REPORT INFORMATION
  Report Type: 
  Country: None (occurrence: None)
  Receive Date: 20060714
  Receipt Date: 20060508
  Transmission Date: 20061208
  Serious: No
  Sender: FDA-Public Use
  Company Number: 2006SP001986

PATIENT
  Age: 65 Year
  Sex: Female
  Weight: 69.6271 kg

DRUGS (2)
  1. LUNESTA [Suspect]
     Indication: INSOMNIA
     Dosage: 2 MG;PRN;ORAL
     Route: 048
     Dates: start: 20060401, end: 20060430
  2. LUNESTA [Suspect]
     Indication: INSOMNIA
     Dosage: 2 MG;PRN;ORAL
     Route: 048
     Dates: start: 20060505, end: 20060507

REACTIONS (3)
  - DYSGEUSIA [None]
  - PAIN [None]
  - URINARY TRACT INFECTION [None]
